FAERS Safety Report 8245205-7 (Version None)
Quarter: 2012Q1

REPORT INFORMATION
  Report Type: 
  Country: None (occurrence: None)
  Receive Date: 20120329
  Receipt Date: 20120321
  Transmission Date: 20120608
  Serious: Yes (Life-Threatening, Hospitalization, Disabling)
  Sender: FDA-Public Use
  Company Number: JP-FRI-1000028744

PATIENT
  Sex: Female

DRUGS (10)
  1. ARICEPT [Concomitant]
     Indication: DEMENTIA ALZHEIMER'S TYPE
     Dosage: 5 MG
     Route: 048
     Dates: start: 20111122, end: 20120123
  2. MUCOSTA [Concomitant]
  3. MEMANTINE [Suspect]
     Indication: DEMENTIA
     Dosage: 5 MG
     Route: 048
     Dates: start: 20120124, end: 20120130
  4. MEMANTINE [Suspect]
     Dosage: 10 MG
     Route: 048
     Dates: start: 20120131, end: 20120205
  5. ARICEPT [Concomitant]
     Dosage: 10 MG
     Route: 048
     Dates: start: 20120124, end: 20120205
  6. NORVASC [Concomitant]
     Indication: HYPERTENSION
     Dosage: 5 MG
     Route: 048
  7. OMEPRAZOLE [Concomitant]
     Dosage: 10 MG
     Route: 048
  8. LOXONIN [Concomitant]
  9. ARICEPT [Concomitant]
     Route: 048
     Dates: start: 20120216
  10. SIMVASTATIN [Concomitant]
     Indication: HYPERLIPIDAEMIA
     Dosage: 5 MG
     Route: 048

REACTIONS (2)
  - CONSTIPATION [None]
  - LARGE INTESTINE PERFORATION [None]
